FAERS Safety Report 10032382 (Version 2)
Quarter: 2014Q2

REPORT INFORMATION
  Report Type: Report from Study
  Country: US (occurrence: US)
  Receive Date: 20140324
  Receipt Date: 20140414
  Transmission Date: 20141212
  Serious: Yes (Hospitalization)
  Sender: FDA-Public Use
  Company Number: US-CELGENEUS-163-21880-14031788

PATIENT
  Age: 4 Year
  Sex: Male
  Weight: 20.75 kg

DRUGS (2)
  1. REVLIMID [Suspect]
     Indication: ASTROCYTOMA
     Route: 048
     Dates: start: 20131120
  2. REVLIMID [Suspect]
     Route: 048
     Dates: start: 20140212, end: 20140302

REACTIONS (1)
  - Convulsion [Recovered/Resolved]
